FAERS Safety Report 7389211-3 (Version None)
Quarter: 2011Q2

REPORT INFORMATION
  Report Type: 
  Country: None (occurrence: None)
  Receive Date: 20110401
  Receipt Date: 20110325
  Transmission Date: 20111010
  Serious: Yes (Other)
  Sender: FDA-Public Use
  Company Number: JP-SANOFI-AVENTIS-A01200910591

PATIENT
  Age: 81 Year
  Sex: Male
  Weight: 52 kg

DRUGS (14)
  1. CLOPIDOGREL BISULFATE [Suspect]
     Indication: PERCUTANEOUS CORONARY INTERVENTION
     Route: 048
     Dates: start: 20090709, end: 20090916
  2. ROSUVASTATIN CALCIUM [Concomitant]
     Indication: HYPERLIPIDAEMIA
     Route: 065
     Dates: start: 20090820
  3. ARTIST [Concomitant]
     Route: 065
     Dates: start: 20090501
  4. AMIODARONE HCL [Suspect]
     Route: 048
     Dates: start: 20090820, end: 20090916
  5. ASPIRIN [Concomitant]
     Indication: ANGINA PECTORIS
     Route: 065
     Dates: start: 20030301
  6. PARIET [Concomitant]
     Indication: GASTRIC ULCER
     Route: 065
     Dates: start: 20090430
  7. ITOROL [Concomitant]
     Indication: ANGINA PECTORIS
     Route: 065
     Dates: start: 20030301
  8. AMIODARONE HCL [Suspect]
     Indication: VENTRICULAR TACHYCARDIA
     Route: 048
     Dates: start: 20090709, end: 20090819
  9. SIGMART [Concomitant]
     Indication: ANGINA PECTORIS
     Route: 065
     Dates: start: 20090326
  10. CLOPIDOGREL BISULFATE [Suspect]
     Indication: ACUTE MYOCARDIAL INFARCTION
     Route: 048
     Dates: start: 20090709, end: 20090916
  11. AMIODARONE HCL [Suspect]
     Indication: VENTRICULAR FIBRILLATION
     Route: 048
     Dates: start: 20090709, end: 20090819
  12. AMIODARONE HCL [Suspect]
     Route: 048
     Dates: start: 20090820, end: 20090916
  13. BASEN [Suspect]
     Indication: DIABETES MELLITUS
     Route: 048
     Dates: start: 20090521, end: 20090916
  14. CONIEL [Concomitant]
     Indication: ANGINA PECTORIS
     Route: 065
     Dates: start: 20090731

REACTIONS (3)
  - INTERSTITIAL LUNG DISEASE [None]
  - LIVER DISORDER [None]
  - HEPATOCELLULAR INJURY [None]
